FAERS Safety Report 8611190 (Version 4)
Quarter: 2013Q1

REPORT INFORMATION
  Report Type: Spontaneous
  Country: US (occurrence: None)
  Receive Date: 20120530
  Receipt Date: 20121113
  Transmission Date: 20140127
  Serious: Yes (Hospitalization, Other)
  Sender: FDA-Public Use
  Company Number: AUR-APL-2012-02353

PATIENT
  Age: 57 Year
  Sex: Male

DRUGS (7)
  1. ATENOLOL (ATENOLOL) [Suspect]
     Indication: PRODUCT USED FOR UNKNOWN INDICATION
     Dosage: 50 MG, DAILY,ORAL
     Route: 048
  2. GABAPENTIN (GABAPENTIN) [Suspect]
     Indication: PRODUCT USED FOR UNKNOWN INDICATION
     Dosage: ORAL
     Route: 048
  3. LISINOPRIL (LISINOPRIL) [Suspect]
     Indication: PRODUCT USED FOR UNKNOWN INDICATION
     Dosage: 10 MG, DAILY
  4. TRAMADOL HYDROCHLORIDE [Suspect]
     Indication: PRODUCT USED FOR UNKNOWN INDICATION
     Dosage: 50 MG, DAILY, ORAL
     Route: 048
  5. SPIRONOLACTONE [Suspect]
     Indication: PRODUCT USED FOR UNKNOWN INDICATION
     Dosage: 25 MG, DAILY, ORAL
     Route: 048
  6. FLEXERIL [Suspect]
     Indication: PRODUCT USED FOR UNKNOWN INDICATION
     Dosage: 10 MG, DAILY;,ORAL
     Route: 048
  7. NEXIUM [Suspect]
     Dosage: 40 MG, DAILY,ORAL
     Route: 048

REACTIONS (15)
  - Pancytopenia [None]
  - Hepatitis C [None]
  - Cirrhosis alcoholic [None]
  - Osteoarthritis [None]
  - Gastric varices [None]
  - Alcohol abuse [None]
  - Obesity [None]
  - Sleep apnoea syndrome [None]
  - Nicotine dependence [None]
  - Erectile dysfunction [None]
  - Gastrooesophageal reflux disease [None]
  - Liver disorder [None]
  - Diverticulum [None]
  - Cholelithiasis [None]
  - Disease complication [None]
